FAERS Safety Report 8564608-4 (Version None)
Quarter: 2012Q3

REPORT INFORMATION
  Report Type: 
  Country: None (occurrence: None)
  Receive Date: 20120803
  Receipt Date: 20120725
  Transmission Date: 20120928
  Serious: Yes (Hospitalization)
  Sender: FDA-Public Use
  Company Number: IT-PFIZER INC-2012184107

PATIENT
  Age: 62 Year
  Sex: Female

DRUGS (9)
  1. AMIODARONE HCL [Suspect]
     Indication: ATRIAL FIBRILLATION
     Dosage: 200 MG, DAILY
     Route: 048
     Dates: start: 20110610, end: 20120610
  2. METFORMIN HYDROCHLORIDE [Concomitant]
     Dosage: UNK
  3. ATORVASTATIN CALCIUM [Concomitant]
     Dosage: 40 MG, UNK
  4. AMARYL [Concomitant]
     Dosage: 4 MG, UNK
  5. LEVEMIR [Concomitant]
     Dosage: UNK
  6. BISOPROLOL FUMARATE [Suspect]
     Indication: ATRIAL FIBRILLATION
     Dosage: 2.5 MG, DAILY
     Route: 048
     Dates: start: 20110610, end: 20120610
  7. VALSARTAN [Concomitant]
     Dosage: 160 MG, UNK
  8. FUROSEMIDE [Concomitant]
     Dosage: UNK
  9. COUMADIN [Suspect]
     Indication: ANTICOAGULANT THERAPY
     Dosage: 5 MG, AS NEEDED
     Route: 048
     Dates: start: 20110610, end: 20120610

REACTIONS (4)
  - HYPERKALAEMIA [None]
  - RECTAL HAEMORRHAGE [None]
  - ATRIOVENTRICULAR BLOCK COMPLETE [None]
  - ABDOMINAL PAIN LOWER [None]
